FAERS Safety Report 8910236 (Version 3)
Quarter: 2013Q3

REPORT INFORMATION
  Report Type: Report from Study
  Country: JP (occurrence: JP)
  Receive Date: 20121115
  Receipt Date: 20130926
  Transmission Date: 20140515
  Serious: Yes (Hospitalization)
  Sender: FDA-Public Use
  Company Number: JP-VERTEX PHARMACEUTICAL INC.-2012-024453

PATIENT
  Age: 59 Year
  Sex: Female

DRUGS (5)
  1. VX-950 (TELAPREVIR) [Suspect]
     Indication: CHRONIC HEPATITIS C
     Dosage: 2250 MG, QD
     Route: 048
     Dates: start: 20120920, end: 20120924
  2. RIBAVIRIN [Suspect]
     Indication: CHRONIC HEPATITIS C
     Dosage: 800 MG, QD
     Route: 048
     Dates: start: 20120920, end: 20120924
  3. PEGINTERFERON ALFA-2B [Suspect]
     Indication: CHRONIC HEPATITIS C
     Dosage: 1.5 ?G/KG, WEEKLY
     Route: 058
     Dates: start: 20120920, end: 20120924
  4. CALONAL [Concomitant]
     Dosage: 400 MG, QD, PRN
     Route: 048
     Dates: start: 20120920, end: 20120924
  5. PURSENNID [Concomitant]
     Dosage: 12 MG, QD, PRN
     Route: 048
     Dates: start: 20120922, end: 20120924

REACTIONS (1)
  - Rash [Recovered/Resolved]
